FAERS Safety Report 10420084 (Version 1)
Quarter: 2014Q3

REPORT INFORMATION
  Report Type: Spontaneous
  Country: GB (occurrence: None)
  Receive Date: 20140828
  Receipt Date: 20140828
  Transmission Date: 20150326
  Serious: Yes (Other)
  Sender: FDA-Public Use
  Company Number: GB-H14001-14-00440

PATIENT
  Age: 82 Year
  Sex: Female

DRUGS (5)
  1. ASPRIN [Concomitant]
     Active Substance: ASPIRIN
  2. ATORVASTATIN (ATORVASTATIN) (UNKNOWN) (ATORVASTATIN) [Concomitant]
  3. ATENOLOL (ATENOLOL) (UNKNOWN) (ATENOLOL) [Concomitant]
  4. BENDROFLUMETHIAZIDE (BENDROFLUMETHIAZIDE) (UNKNOWN) (BENDROFLUMETHIAZIDE) [Concomitant]
  5. CO-AMOXICLAV [Suspect]
     Active Substance: AMOXICILLIN\CLAVULANIC ACID
     Indication: PRODUCT USED FOR UNKNOWN INDICATION
     Dates: start: 20140624

REACTIONS (1)
  - Hallucination [None]

NARRATIVE: CASE EVENT DATE: 20140808
